FAERS Safety Report 15279262 (Version 1)
Quarter: 2018Q4

REPORT INFORMATION
  Report Type: Spontaneous
  Country: ES (occurrence: ES)
  Receive Date: 20180815
  Receipt Date: 20180815
  Transmission Date: 20190204
  Serious: Yes (Other)
  Sender: FDA-Public Use
  Company Number: ES-TEVA-2018-ES-940802

PATIENT
  Age: 88 Year
  Sex: Female
  Weight: 100 kg

DRUGS (6)
  1. ARANESP 30 MICROGRAMOS SOLUCION INYECTABLE EN JERINGA PRECARGADA, 4 JE [Concomitant]
     Indication: CHRONIC KIDNEY DISEASE
     Route: 058
     Dates: start: 20180104
  2. CIPROFLOXACINO RATIO 500 MG COMPRIMIDOS RECUBIERTOS CON PELICULA EFG, [Suspect]
     Active Substance: CIPROFLOXACIN
     Indication: URINARY TRACT INFECTION
     Route: 048
     Dates: start: 20180123
  3. BISOPROLOL NORMON 2,5 MG COMPRIMIDOS RECUBIERTOS CON PELICULA EFG , 28 [Suspect]
     Active Substance: BISOPROLOL
     Indication: CARDIAC FAILURE
     Dosage: 2.5 MILLIGRAM DAILY;
     Route: 048
     Dates: start: 20151117, end: 20180322
  4. ALOPURINOL NORMON 100 MG COMPRIMIDOS EFG , 500 COMPRIMIDOS [Concomitant]
     Dosage: 100 MILLIGRAM DAILY;
     Route: 048
  5. ATORVASTATINA NORMON 20 MG COMPRIMIDOS RECUBIERTOS CON PELICULA EFG , [Concomitant]
     Dosage: 20 MILLIGRAM DAILY;
     Route: 048
  6. OMEPRAZOL NORMON 20 MG CAPSULAS DURAS GASTRORRESISTENTES EFG , 500 C?P [Concomitant]
     Dosage: 20 MILLIGRAM DAILY;
     Route: 048

REACTIONS (1)
  - Hallucination, visual [Recovered/Resolved]

NARRATIVE: CASE EVENT DATE: 20180323
